FAERS Safety Report 8851020 (Version 2)
Quarter: 2014Q2

REPORT INFORMATION
  Report Type: Report from Study
  Country: CA (occurrence: CA)
  Receive Date: 20121019
  Receipt Date: 20140521
  Transmission Date: 20141212
  Serious: Yes (Hospitalization)
  Sender: FDA-Public Use
  Company Number: CA-JNJFOC-20121006666

PATIENT
  Age: 78 Year
  Sex: Female
  Weight: 43 kg

DRUGS (1)
  1. REMICADE [Suspect]
     Indication: RHEUMATOID ARTHRITIS
     Route: 042
     Dates: start: 200408

REACTIONS (3)
  - Impaired self-care [Not Recovered/Not Resolved]
  - Asthenia [Unknown]
  - Dementia Alzheimer^s type [Not Recovered/Not Resolved]
